FAERS Safety Report 24208133 (Version 1)
Quarter: 2024Q3

REPORT INFORMATION
  Report Type: Spontaneous
  Country: FR (occurrence: FR)
  Receive Date: 20240814
  Receipt Date: 20240814
  Transmission Date: 20241016
  Serious: Yes (Death, Hospitalization, Other)
  Sender: AUROBINDO
  Company Number: FR-SUN PHARMACEUTICAL INDUSTRIES LTD-2024RR-459423

PATIENT
  Age: 73 Year
  Sex: Male
  Weight: 55 kg

DRUGS (6)
  1. BISOPROLOL [Suspect]
     Active Substance: BISOPROLOL\BISOPROLOL FUMARATE
     Indication: Atrial fibrillation
     Dosage: 1.25 MILLIGRAM, ONCE A DAY (1.25 MILLIGRAM, QD)
     Route: 065
     Dates: start: 20240404, end: 202404
  2. TISOTUMAB VEDOTIN [Suspect]
     Active Substance: TISOTUMAB VEDOTIN
     Indication: Squamous cell carcinoma of head and neck
     Dosage: 1.7 MILLIGRAM [1.7 MILLIGRAM, DAY 1 AND 15 OF EVERY 28 DAY CYCLE]
     Route: 042
     Dates: start: 20240319, end: 20240418
  3. TISOTUMAB VEDOTIN [Suspect]
     Active Substance: TISOTUMAB VEDOTIN
     Dosage: UNK [1.7 MG/KG, DAY 1 AND 15 OF EVERY 28 DAY CYCLE (2Q4W REGIMEN) ]
     Route: 042
     Dates: start: 20240418
  4. DAPAGLIFLOZIN [Concomitant]
     Active Substance: DAPAGLIFLOZIN
     Indication: Atrial fibrillation
     Dosage: UNK
     Route: 065
     Dates: start: 20240416
  5. RAMIPRIL [Concomitant]
     Active Substance: RAMIPRIL
     Indication: Atrial fibrillation
     Dosage: UNK
     Route: 065
     Dates: start: 20240416
  6. Solupred [Concomitant]
     Indication: Pneumonitis
     Dosage: UNK
     Route: 065
     Dates: start: 20240418, end: 20240418

REACTIONS (2)
  - Pneumonia [Fatal]
  - Hypotension [Fatal]

NARRATIVE: CASE EVENT DATE: 20240425
